FAERS Safety Report 5579888-7 (Version None)
Quarter: 2008Q1

REPORT INFORMATION
  Report Type: 
  Country: None (occurrence: None)
  Receive Date: 20080102
  Receipt Date: 20071227
  Transmission Date: 20080703
  Serious: Yes (Life-Threatening, Hospitalization)
  Sender: FDA-Public Use
  Company Number: ES-PFIZER INC-2007108118

PATIENT
  Age: 80 Year
  Sex: Female

DRUGS (1)
  1. SUTENT [Suspect]
     Indication: GASTRIC NEOPLASM
     Route: 048
     Dates: start: 20071010, end: 20071109

REACTIONS (2)
  - HYPERTENSIVE CRISIS [None]
  - ISCHAEMIC STROKE [None]
